FAERS Safety Report 15489833 (Version 1)
Quarter: 2018Q4

REPORT INFORMATION
  Report Type: Report from Study
  Country: US (occurrence: US)
  Receive Date: 20181011
  Receipt Date: 20181011
  Transmission Date: 20190205
  Serious: Yes (Hospitalization)
  Sender: FDA-Public Use
  Company Number: US-ASTRAZENECA-2018SF29955

PATIENT
  Sex: Female
  Weight: 105.2 kg

DRUGS (7)
  1. METFORMIN [Suspect]
     Active Substance: METFORMIN HYDROCHLORIDE
     Dosage: NON AZ
     Route: 065
  2. XIGDUO XR [Suspect]
     Active Substance: DAPAGLIFLOZIN PROPANEDIOL\METFORMIN HYDROCHLORIDE
     Indication: TYPE 2 DIABETES MELLITUS
     Dosage: 10/500 MG ORAL TWICE A DAY
     Route: 048
  3. FARXIGA [Suspect]
     Active Substance: DAPAGLIFLOZIN PROPANEDIOL
     Indication: TYPE 2 DIABETES MELLITUS
     Dosage: UNKNOWN DOSE BY MOUTH ONCE A DAY
     Route: 048
  4. BYDUREON [Suspect]
     Active Substance: EXENATIDE
     Route: 065
  5. OMEPRAZOLE. [Suspect]
     Active Substance: OMEPRAZOLE
     Route: 048
  6. SYMBICORT [Suspect]
     Active Substance: BUDESONIDE\FORMOTEROL FUMARATE DIHYDRATE
     Dosage: 2 PUFFS ONCE A DAY IN THE MORNING
     Route: 055
  7. GLIMEPIRIDE. [Concomitant]
     Active Substance: GLIMEPIRIDE
     Indication: TYPE 2 DIABETES MELLITUS
     Route: 048

REACTIONS (14)
  - Condition aggravated [Unknown]
  - Irritable bowel syndrome [Unknown]
  - Abdominal distension [Unknown]
  - Flatulence [Unknown]
  - Bronchitis [Unknown]
  - Fungal infection [Unknown]
  - Product residue present [Unknown]
  - Nephrolithiasis [Unknown]
  - Ill-defined disorder [Unknown]
  - Upper respiratory tract infection [Unknown]
  - Dyspepsia [Unknown]
  - Diarrhoea [Unknown]
  - White blood cell count increased [Unknown]
  - Abdominal discomfort [Unknown]
